FAERS Safety Report 6638573-0 (Version None)
Quarter: 2010Q1

REPORT INFORMATION
  Report Type: 
  Country: None (occurrence: None)
  Receive Date: 20100301
  Receipt Date: 20090606
  Transmission Date: 20100710
  Serious: Yes (Hospitalization, Other)
  Sender: FDA-Public Use
  Company Number: RB-16630-2009

PATIENT
  Age: 54 Year
  Sex: Female

DRUGS (3)
  1. SUBOXONE [Suspect]
     Indication: DRUG DEPENDENCE
     Dosage: UNKNOWN DOSE SUBLINGUAL
     Route: 060
     Dates: start: 20080218, end: 20080218
  2. LEXAPRO [Concomitant]
  3. LISINOPRIL [Concomitant]

REACTIONS (4)
  - FALL [None]
  - PAIN [None]
  - PELVIC FRACTURE [None]
  - WRIST FRACTURE [None]
